FAERS Safety Report 17838646 (Version 2)
Quarter: 2020Q4

REPORT INFORMATION
  Report Type: Report from Study
  Country: US (occurrence: US)
  Receive Date: 20200528
  Receipt Date: 20201001
  Transmission Date: 20210113
  Serious: Yes (Hospitalization, Other)
  Sender: FDA-Public Use
  Company Number: NVSC2019US087007

PATIENT
  Age: 1 Year
  Sex: Female
  Weight: 11.3 kg

DRUGS (32)
  1. PREDNISOLONE. [Concomitant]
     Active Substance: PREDNISOLONE
     Indication: PROPHYLAXIS
     Dosage: 1 MG/KG, QD
     Route: 042
     Dates: start: 20190520
  2. SOLU-MEDROL [Concomitant]
     Active Substance: METHYLPREDNISOLONE SODIUM SUCCINATE
     Dosage: 10 MG/KG, QD X 3 DAYS
     Route: 065
     Dates: start: 201907, end: 201907
  3. SOLU-MEDROL [Concomitant]
     Active Substance: METHYLPREDNISOLONE SODIUM SUCCINATE
     Dosage: UNK (4 MG/KG/DAY FOR 1 DAY)
     Route: 065
  4. SOLU-MEDROL [Concomitant]
     Active Substance: METHYLPREDNISOLONE SODIUM SUCCINATE
     Dosage: UNK (3 MG/KG/DAY FOR 1 DAY)
     Route: 065
  5. SOLU-MEDROL [Concomitant]
     Active Substance: METHYLPREDNISOLONE SODIUM SUCCINATE
     Dosage: UNK  (2 MG/KG/DAY)
     Route: 065
  6. PREDNISONE. [Concomitant]
     Active Substance: PREDNISONE
     Indication: LIVER FUNCTION TEST INCREASED
     Dosage: 2 MG/KG, QD
     Route: 048
     Dates: start: 20190710
  7. PREDNISONE. [Concomitant]
     Active Substance: PREDNISONE
     Dosage: 3 MG/KG, QD
     Route: 048
     Dates: start: 20190725
  8. NACL [Concomitant]
     Active Substance: SODIUM CHLORIDE
     Indication: DYSPNOEA
  9. SODIUM PHOSPHATE AND SODIUM BIPHOSPHATE [Concomitant]
     Active Substance: SODIUM PHOSPHATE\SODIUM PHOSPHATE, MONOBASIC, UNSPECIFIED FORM
     Indication: PRODUCT USED FOR UNKNOWN INDICATION
     Dosage: 62.5 MG, QD (EVERY 6 HOURS)
     Route: 048
  10. ZANTAC [Concomitant]
     Active Substance: RANITIDINE HYDROCHLORIDE
     Indication: GASTROOESOPHAGEAL REFLUX DISEASE
     Dosage: 45 MG, BID
     Route: 065
  11. PREDNISOLONE. [Concomitant]
     Active Substance: PREDNISOLONE
     Dosage: 2.50 MG/KG, QD
     Route: 042
     Dates: start: 20190725
  12. PREDNISOLONE. [Concomitant]
     Active Substance: PREDNISOLONE
     Dosage: 20 MG (TOTAL)
     Route: 048
     Dates: start: 20190725
  13. SOLU-MEDROL [Concomitant]
     Active Substance: METHYLPREDNISOLONE SODIUM SUCCINATE
     Indication: LIVER FUNCTION TEST INCREASED
     Dosage: 20 MG/KG, QD
     Route: 042
     Dates: start: 20190702, end: 20190707
  14. SOLU-MEDROL [Concomitant]
     Active Substance: METHYLPREDNISOLONE SODIUM SUCCINATE
     Dosage: UNK (5 MF/KG/DAY FOR 1 DAY)
     Route: 065
  15. PREDNISONE. [Concomitant]
     Active Substance: PREDNISONE
     Indication: PROPHYLAXIS
     Dosage: 2 MG/KG, QD
     Route: 065
     Dates: start: 20190520, end: 20190701
  16. PREDNISONE. [Concomitant]
     Active Substance: PREDNISONE
     Dosage: 3 MG/KG, QD
     Route: 048
     Dates: start: 20190712
  17. FLOVENT [Concomitant]
     Active Substance: FLUTICASONE PROPIONATE
     Indication: LUNG DISORDER
     Dosage: 2 UNK, BID
     Route: 065
     Dates: start: 20180702, end: 201807
  18. PULMICORT TURBUHALER [Concomitant]
     Active Substance: BUDESONIDE
     Indication: LUNG DISORDER
     Dosage: 1 VIAL, BID
     Route: 065
     Dates: start: 20180530, end: 20180721
  19. ACETAMINOPHEN. [Concomitant]
     Active Substance: ACETAMINOPHEN
     Indication: PRODUCT USED FOR UNKNOWN INDICATION
     Dosage: 4.3 ML (EVERY 6 HOUR)
     Route: 065
  20. NACL [Concomitant]
     Active Substance: SODIUM CHLORIDE
     Indication: COUGH
     Dosage: 3 ML (EVERY 4 HOUR)
     Route: 065
  21. ZOLGENSMA [Suspect]
     Active Substance: ONASEMNOGENE ABEPARVOVEC-XIOI
     Indication: SPINAL MUSCULAR ATROPHY
     Dosage: 57.80 ML, ONCE/SINGLE
     Route: 042
     Dates: start: 20190521, end: 20190521
  22. ATROVENT [Concomitant]
     Active Substance: IPRATROPIUM BROMIDE
     Indication: LUNG DISORDER
     Dosage: 1.25 ML, TID
     Route: 065
     Dates: start: 20180601
  23. LIDOCAINE. [Concomitant]
     Active Substance: LIDOCAINE
     Indication: PRODUCT USED FOR UNKNOWN INDICATION
     Dosage: UNK
     Route: 065
  24. SOLU-MEDROL [Concomitant]
     Active Substance: METHYLPREDNISOLONE SODIUM SUCCINATE
     Dosage: UNK (20 MG/KG/DAY FOR 2 DAYS)
     Route: 065
  25. LANSOPRAZOLE. [Concomitant]
     Active Substance: LANSOPRAZOLE
     Indication: PRODUCT USED FOR UNKNOWN INDICATION
     Dosage: 3.3 MG/ML, QD (BEFORE BREAKFAST)
     Route: 048
  26. FERROUS SULFATE. [Concomitant]
     Active Substance: FERROUS SULFATE
     Indication: PRODUCT USED FOR UNKNOWN INDICATION
     Dosage: 1 ML, QD
     Route: 065
  27. ALBUTEROL. [Concomitant]
     Active Substance: ALBUTEROL
     Indication: LUNG DISORDER
     Dosage: 1.25 MG, BID
     Route: 065
     Dates: start: 201806
  28. PREDNISOLONE. [Concomitant]
     Active Substance: PREDNISOLONE
     Dosage: 2 MG/KG, QD
     Route: 042
     Dates: start: 20190520, end: 20190701
  29. ALBUTEROL. [Concomitant]
     Active Substance: ALBUTEROL
     Dosage: 3 ML (BY NEBULIZATION)
     Route: 065
  30. NUSINERSEN [Concomitant]
     Active Substance: NUSINERSEN
     Indication: PRODUCT USED FOR UNKNOWN INDICATION
     Dosage: 12 MG (EVERY 4 MONTH)
     Route: 037
  31. GLYCERIN. [Concomitant]
     Active Substance: GLYCERIN
     Indication: CONSTIPATION
     Dosage: 1 DF, QD
     Route: 065
  32. LEVOCARNITINE. [Concomitant]
     Active Substance: LEVOCARNITINE
     Indication: PRODUCT USED FOR UNKNOWN INDICATION
     Dosage: 2.5 ML, QD (MIXED WITH FEEDS)
     Route: 065

REACTIONS (4)
  - Hepatotoxicity [Recovered/Resolved with Sequelae]
  - Liver function test increased [Recovered/Resolved with Sequelae]
  - Acute hepatic failure [Unknown]
  - Hepatic necrosis [Recovered/Resolved with Sequelae]

NARRATIVE: CASE EVENT DATE: 20190702
